FAERS Safety Report 6158595-6 (Version None)
Quarter: 2009Q2

REPORT INFORMATION
  Report Type: 
  Country: None (occurrence: None)
  Receive Date: 20090417
  Receipt Date: 20090416
  Transmission Date: 20091009
  Serious: Yes (Other)
  Sender: FDA-Public Use
  Company Number: A0778851A

PATIENT
  Age: 49 Year
  Sex: Male

DRUGS (1)
  1. NICODERM CQ [Suspect]
     Indication: SMOKING CESSATION THERAPY
     Route: 062
     Dates: start: 20090414, end: 20090415

REACTIONS (3)
  - HALLUCINATION [None]
  - INSOMNIA [None]
  - NIGHTMARE [None]
